FAERS Safety Report 8181262-4 (Version None)
Quarter: 2012Q1

REPORT INFORMATION
  Report Type: 
  Country: None (occurrence: None)
  Receive Date: 20120302
  Receipt Date: 20120223
  Transmission Date: 20120608
  Serious: Yes (Other)
  Sender: FDA-Public Use
  Company Number: US-BAYER-2011-052038

PATIENT
  Age: 26 Year
  Sex: Female
  Weight: 82 kg

DRUGS (4)
  1. YASMIN [Suspect]
     Indication: PERIODONTAL DISEASE
  2. YASMIN [Suspect]
     Indication: POLYCYSTIC OVARIES
     Dosage: UNK
     Dates: start: 20020101, end: 20090101
  3. DROSPIRENONE AND ETHINYL ESTRADIOL [Suspect]
     Indication: PERIODONTAL DISEASE
  4. DROSPIRENONE AND ETHINYL ESTRADIOL [Suspect]
     Indication: POLYCYSTIC OVARIES
     Dosage: UNK
     Dates: start: 20020101, end: 20090101

REACTIONS (12)
  - DYSPEPSIA [None]
  - CHOLECYSTECTOMY [None]
  - ANXIETY [None]
  - CHOLELITHIASIS [None]
  - CONSTIPATION [None]
  - FLATULENCE [None]
  - DIARRHOEA [None]
  - PAIN [None]
  - SCAR [None]
  - DEPRESSION [None]
  - EMOTIONAL DISTRESS [None]
  - ABDOMINAL DISTENSION [None]
